FAERS Safety Report 25292647 (Version 3)
Quarter: 2025Q3

REPORT INFORMATION
  Report Type: Spontaneous
  Country: US (occurrence: US)
  Receive Date: 20250510
  Receipt Date: 20250825
  Transmission Date: 20251020
  Serious: No
  Sender: SANOFI AVENTIS
  Company Number: US-SA-2025SA123064

PATIENT
  Age: 33 Year
  Sex: Male

DRUGS (2)
  1. DUPIXENT [Suspect]
     Active Substance: DUPILUMAB
     Indication: Dermatitis atopic
     Dosage: 300 MG, QOW
     Route: 058
     Dates: start: 202502
  2. DUPIXENT [Suspect]
     Active Substance: DUPILUMAB
     Indication: Eczema

REACTIONS (12)
  - Palpitations [Unknown]
  - Visual impairment [Unknown]
  - Muscle tightness [Unknown]
  - Blood pressure increased [Unknown]
  - Eyelid irritation [Unknown]
  - Eyelid pain [Unknown]
  - Eyelid skin dryness [Unknown]
  - Rash erythematous [Unknown]
  - Eyelids pruritus [Unknown]
  - Injection site swelling [Recovered/Resolved]
  - Eczema [Unknown]
  - Therapeutic response decreased [Unknown]

NARRATIVE: CASE EVENT DATE: 20250101
